FAERS Safety Report 6920077-9 (Version None)
Quarter: 2010Q3

REPORT INFORMATION
  Report Type: 
  Country: None (occurrence: None)
  Receive Date: 20100730
  Receipt Date: 20091222
  Transmission Date: 20110219
  Serious: Yes (Other)
  Sender: FDA-Public Use
  Company Number: OMPQ-PR-0912S-1032

PATIENT
  Age: 29 Year
  Sex: Female
  Weight: 122.4712 kg

DRUGS (1)
  1. OMNIPAQUE 140 [Suspect]
     Indication: CHEST X-RAY ABNORMAL
     Dosage: SINGLE DOSE, I.V.
     Route: 042
     Dates: start: 20091124, end: 20091124

REACTIONS (5)
  - ANAPHYLACTOID REACTION [None]
  - DYSPNOEA [None]
  - PHARYNGEAL OEDEMA [None]
  - THROAT TIGHTNESS [None]
  - WHEEZING [None]
